FAERS Safety Report 7903904-8 (Version None)
Quarter: 2011Q4

REPORT INFORMATION
  Report Type: 
  Country: None (occurrence: None)
  Receive Date: 20111109
  Receipt Date: 20111031
  Transmission Date: 20120403
  Serious: Yes (Other)
  Sender: FDA-Public Use
  Company Number: US-ASTRAZENECA-2010SE30855

PATIENT
  Age: 75 Year
  Sex: Female

DRUGS (4)
  1. CRESTOR [Suspect]
     Route: 048
  2. ZANTAC [Concomitant]
  3. NEXIUM [Suspect]
     Route: 048
  4. PRILOSEC [Suspect]
     Route: 048

REACTIONS (5)
  - BARRETT'S OESOPHAGUS [None]
  - ASTHENIA [None]
  - DRUG DOSE OMISSION [None]
  - OESOPHAGEAL CARCINOMA [None]
  - GASTROOESOPHAGEAL REFLUX DISEASE [None]
